FAERS Safety Report 25043956 (Version 1)
Quarter: 2025Q1

REPORT INFORMATION
  Report Type: Spontaneous
  Country: CA (occurrence: CA)
  Receive Date: 20250306
  Receipt Date: 20250306
  Transmission Date: 20250408
  Serious: Yes (Other)
  Sender: ROCHE
  Company Number: CA-002147023-NVSC2025CA034044

PATIENT
  Age: 58 Year
  Sex: Female

DRUGS (1)
  1. OMALIZUMAB [Suspect]
     Active Substance: OMALIZUMAB
     Indication: Chronic spontaneous urticaria
     Route: 050

REACTIONS (13)
  - Abdominal pain upper [Recovering/Resolving]
  - Anaphylactic reaction [Recovering/Resolving]
  - Anaphylactic shock [Recovering/Resolving]
  - Cough [Recovering/Resolving]
  - Deafness [Recovering/Resolving]
  - Dizziness [Recovering/Resolving]
  - Ear haemorrhage [Recovering/Resolving]
  - Epistaxis [Recovering/Resolving]
  - Illness [Recovering/Resolving]
  - Influenza [Recovering/Resolving]
  - Residual symptom [Recovering/Resolving]
  - Urticaria [Recovering/Resolving]
  - Vomiting [Recovering/Resolving]
